FAERS Safety Report 15021879 (Version 1)
Quarter: 2018Q2

REPORT INFORMATION
  Report Type: Spontaneous
  Country: US (occurrence: US)
  Receive Date: 20180618
  Receipt Date: 20180618
  Transmission Date: 20180711
  Serious: No
  Sender: FDA-Public Use
  Company Number: US-SA-2018SA132136

PATIENT
  Age: 67 Year
  Sex: Female

DRUGS (6)
  1. ARAVA [Suspect]
     Active Substance: LEFLUNOMIDE
     Indication: PRODUCT USED FOR UNKNOWN INDICATION
     Dosage: UNK UNK,UNK
     Route: 065
     Dates: start: 201204, end: 201211
  2. CODEINE [Suspect]
     Active Substance: CODEINE
     Indication: PRODUCT USED FOR UNKNOWN INDICATION
     Dosage: UNK UNK, UNK
  3. ENBREL [Concomitant]
     Active Substance: ETANERCEPT
     Dosage: UNK UNK,UNK
     Route: 065
     Dates: end: 2018
  4. XELJANZ XR [Suspect]
     Active Substance: TOFACITINIB CITRATE
     Indication: RHEUMATOID ARTHRITIS
     Dosage: 11 MG, BID
     Route: 048
  5. PLAQUENIL [Suspect]
     Active Substance: HYDROXYCHLOROQUINE SULFATE
     Indication: RHEUMATOID ARTHRITIS
     Dosage: UNK UNK, UNK
     Dates: start: 2009
  6. METHOTREXATE. [Suspect]
     Active Substance: METHOTREXATE
     Indication: PRODUCT USED FOR UNKNOWN INDICATION
     Dosage: UNK UNK, UNK
     Dates: start: 201204, end: 201211

REACTIONS (3)
  - Infection [Unknown]
  - Hypersensitivity [Unknown]
  - Fatigue [Unknown]

NARRATIVE: CASE EVENT DATE: 20180111
